FAERS Safety Report 5521900-5 (Version None)
Quarter: 2007Q4

REPORT INFORMATION
  Report Type: 
  Country: None (occurrence: None)
  Receive Date: 20071120
  Receipt Date: 20071105
  Transmission Date: 20080405
  Serious: Yes (Other)
  Sender: FDA-Public Use
  Company Number: JP-AMGEN-US247057

PATIENT
  Sex: Male
  Weight: 2.61 kg

DRUGS (10)
  1. ENBREL [Suspect]
     Indication: RHEUMATOID ARTHRITIS
     Route: 064
     Dates: start: 20050908, end: 20060720
  2. ENBREL [Suspect]
     Route: 064
     Dates: start: 20060720, end: 20061029
  3. ENBREL [Suspect]
     Route: 064
     Dates: start: 20061030, end: 20070104
  4. ENBREL [Suspect]
     Route: 064
     Dates: start: 20070105, end: 20070905
  5. LOXONIN [Concomitant]
     Indication: RHEUMATOID ARTHRITIS
     Route: 064
     Dates: start: 20050908, end: 20050925
  6. LOXONIN [Concomitant]
     Route: 064
     Dates: start: 20050926, end: 20061201
  7. PREDNISOLONE [Concomitant]
     Indication: RHEUMATOID ARTHRITIS
     Route: 064
     Dates: start: 20050908, end: 20050925
  8. PREDNISOLONE [Concomitant]
     Route: 064
     Dates: start: 20050926, end: 20060801
  9. PREDNISOLONE [Concomitant]
     Route: 064
     Dates: start: 20060802, end: 20070510
  10. PREDNISOLONE [Concomitant]
     Route: 064
     Dates: start: 20070511

REACTIONS (1)
  - NEONATAL ASPHYXIA [None]
